FAERS Safety Report 20432846 (Version 1)
Quarter: 2022Q1

REPORT INFORMATION
  Report Type: Spontaneous
  Country: US (occurrence: US)
  Receive Date: 20220205
  Receipt Date: 20220205
  Transmission Date: 20220423
  Serious: Yes (Hospitalization)
  Sender: FDA-Public Use
  Company Number: US-BRISTOL-MYERS SQUIBB COMPANY-BMS-2022-014805

PATIENT
  Age: 87 Year
  Sex: Female
  Weight: 102.04 kg

DRUGS (4)
  1. ORENCIA [Suspect]
     Active Substance: ABATACEPT
     Indication: Rheumatoid arthritis
     Dosage: 125 MILLIGRAM, QWK
     Route: 058
  2. ORENCIA [Suspect]
     Active Substance: ABATACEPT
     Indication: Rheumatoid arthritis
     Dosage: 125 MILLIGRAM, QWK
     Route: 058
  3. ORENCIA [Suspect]
     Active Substance: ABATACEPT
     Dosage: SOMETIMES 125 MG IN 14 DAYS IF SHE FORGET
     Route: 058
  4. ORENCIA [Suspect]
     Active Substance: ABATACEPT
     Dosage: SOMETIMES 125 MG IN 14 DAYS IF SHE FORGET
     Route: 058

REACTIONS (6)
  - Arthropathy [Unknown]
  - Back pain [Unknown]
  - Gait disturbance [Unknown]
  - Body height decreased [Unknown]
  - Device malfunction [Unknown]
  - Treatment noncompliance [Unknown]
